FAERS Safety Report 4908582-8 (Version None)
Quarter: 2006Q1

REPORT INFORMATION
  Report Type: 
  Country: None (occurrence: None)
  Receive Date: 20060210
  Receipt Date: 20050906
  Transmission Date: 20060701
  Serious: No
  Sender: FDA-Public Use
  Company Number: US-GLAXOSMITHKLINE-A0573119A

PATIENT
  Age: 58 Year
  Sex: Female

DRUGS (3)
  1. PAXIL CR [Suspect]
     Indication: DEPRESSION
     Route: 048
     Dates: start: 20040101
  2. PAXIL [Suspect]
     Indication: DEPRESSION
     Dosage: 30MG TWICE PER DAY
     Route: 048
     Dates: start: 20040101
  3. PAXIL [Suspect]
     Dosage: 20MG THREE TIMES PER DAY
     Route: 048
     Dates: start: 20050801

REACTIONS (3)
  - DRUG INEFFECTIVE [None]
  - EUPHORIC MOOD [None]
  - NAUSEA [None]
